FAERS Safety Report 16645721 (Version 20)
Quarter: 2021Q3

REPORT INFORMATION
  Report Type: Spontaneous
  Country: CA (occurrence: CA)
  Receive Date: 20190730
  Receipt Date: 20210906
  Transmission Date: 20211014
  Serious: Yes (Other)
  Sender: FDA-Public Use
  Company Number: CA-CELLTRION INC.-2018CA024063

PATIENT

DRUGS (32)
  1. INFLECTRA [Suspect]
     Active Substance: INFLIXIMAB-DYYB
     Dosage: 8MG/KG EVERY 8 WEEKS
     Route: 042
     Dates: start: 20191105
  2. INFLECTRA [Suspect]
     Active Substance: INFLIXIMAB-DYYB
     Dosage: 8MG/KG EVERY 8 WEEKS
     Route: 042
     Dates: start: 20191231
  3. INFLECTRA [Suspect]
     Active Substance: INFLIXIMAB-DYYB
     Dosage: 8MG/KG EVERY 6 WEEKS
     Route: 042
     Dates: start: 20210825
  4. INFLECTRA [Suspect]
     Active Substance: INFLIXIMAB-DYYB
     Dosage: 5 MG/KG EVERY 0,2,6 WEEKS THEN EVERY 8 WEEKS
     Route: 042
     Dates: start: 20190320
  5. INFLECTRA [Suspect]
     Active Substance: INFLIXIMAB-DYYB
     Dosage: 8MG/KG EVERY 8 WEEKS
     Route: 042
     Dates: start: 20190910
  6. INFLECTRA [Suspect]
     Active Substance: INFLIXIMAB-DYYB
     Dosage: 8MG/KG EVERY 8 WEEKS
     Route: 042
     Dates: start: 20191105
  7. INFLECTRA [Suspect]
     Active Substance: INFLIXIMAB-DYYB
     Dosage: 8MG/KG EVERY 6 WEEKS
     Route: 042
     Dates: start: 20200211
  8. INFLECTRA [Suspect]
     Active Substance: INFLIXIMAB-DYYB
     Dosage: 8MG/KG EVERY 6 WEEKS
     Route: 042
     Dates: start: 20201104
  9. INFLECTRA [Suspect]
     Active Substance: INFLIXIMAB-DYYB
     Dosage: 8MG/KG EVERY 6 WEEKS
     Route: 042
     Dates: start: 20210602
  10. INFLECTRA [Suspect]
     Active Substance: INFLIXIMAB-DYYB
     Dosage: 8MG/KG EVERY 6 WEEKS
     Route: 042
     Dates: start: 20210714
  11. INFLECTRA [Suspect]
     Active Substance: INFLIXIMAB-DYYB
     Dosage: 5 MG, EVERY 0,2,6 WEEKS THEN EVERY 8 WEEKS/WEEK 6 DOSE
     Route: 042
     Dates: start: 20181128, end: 20181128
  12. INFLECTRA [Suspect]
     Active Substance: INFLIXIMAB-DYYB
     Dosage: 5 MG/KG EVERY 0,2,6 WEEKS THEN EVERY 8 WEEKS
     Route: 042
     Dates: start: 20190320
  13. INFLECTRA [Suspect]
     Active Substance: INFLIXIMAB-DYYB
     Dosage: 8MG/KG EVERY 8 WEEKS
     Route: 042
     Dates: start: 20190910
  14. INFLECTRA [Suspect]
     Active Substance: INFLIXIMAB-DYYB
     Dosage: 8MG/KG EVERY 8 WEEKS
     Route: 042
     Dates: start: 20191105
  15. INFLECTRA [Suspect]
     Active Substance: INFLIXIMAB-DYYB
     Dosage: 8MG/KG EVERY 6 WEEKS
     Route: 042
     Dates: start: 20200922
  16. INFLECTRA [Suspect]
     Active Substance: INFLIXIMAB-DYYB
     Indication: CROHN^S DISEASE
     Dosage: 5 MG/KG, Q (EVERY) 0, 2, 6 WEEKS THEN EVERY 8 WEEKS/WEEK 0 DOSE
     Route: 042
     Dates: start: 20181015, end: 20181015
  17. INFLECTRA [Suspect]
     Active Substance: INFLIXIMAB-DYYB
     Dosage: 5 MG/KG EVERY 0,2,6 WEEKS THEN EVERY 8 WEEKS
     Route: 042
     Dates: start: 20190121
  18. INFLECTRA [Suspect]
     Active Substance: INFLIXIMAB-DYYB
     Dosage: 8MG/KG EVERY 6 WEEKS
     Route: 042
     Dates: start: 20201215
  19. INFLECTRA [Suspect]
     Active Substance: INFLIXIMAB-DYYB
     Dosage: 8MG/KG EVERY 6 WEEKS
     Route: 042
     Dates: start: 20210126
  20. INFLECTRA [Suspect]
     Active Substance: INFLIXIMAB-DYYB
     Dosage: 8MG/KG EVERY 6 WEEKS
     Route: 042
     Dates: start: 20210309
  21. INFLECTRA [Suspect]
     Active Substance: INFLIXIMAB-DYYB
     Dosage: 8MG/KG EVERY 6 WEEKS
     Route: 042
     Dates: start: 20200623
  22. INFLECTRA [Suspect]
     Active Substance: INFLIXIMAB-DYYB
     Dosage: 8MG/KG EVERY 6 WEEKS
     Route: 042
     Dates: start: 20210309
  23. CORTISONE [Concomitant]
     Active Substance: CORTISONE
     Dosage: UNK
     Dates: start: 201802
  24. XOLAIR [Concomitant]
     Active Substance: OMALIZUMAB
     Dosage: 1 DF
     Route: 065
  25. INFLECTRA [Suspect]
     Active Substance: INFLIXIMAB-DYYB
     Dosage: 5 MG, EVERY 0,2,6 WEEKS THEN EVERY 8 WEEKS/WEEK 2 DOSE
     Route: 042
     Dates: start: 20181101, end: 20181101
  26. INFLECTRA [Suspect]
     Active Substance: INFLIXIMAB-DYYB
     Dosage: 8MG/KG EVERY 8 WEEKS
     Route: 042
     Dates: start: 20190716
  27. INFLECTRA [Suspect]
     Active Substance: INFLIXIMAB-DYYB
     Dosage: 8MG/KG EVERY 6 WEEKS
     Route: 042
     Dates: start: 20200511
  28. INFLECTRA [Suspect]
     Active Substance: INFLIXIMAB-DYYB
     Dosage: 8MG/KG EVERY 6 WEEKS
     Route: 042
     Dates: start: 20210420
  29. XOLAIR [Concomitant]
     Active Substance: OMALIZUMAB
     Dosage: 1 DF
     Route: 065
  30. INFLECTRA [Suspect]
     Active Substance: INFLIXIMAB-DYYB
     Dosage: 8MG/KG EVERY 8 WEEKS
     Route: 042
     Dates: start: 20190514
  31. INFLECTRA [Suspect]
     Active Substance: INFLIXIMAB-DYYB
     Dosage: 8MG/KG EVERY 6 WEEKS
     Route: 042
     Dates: start: 20200330
  32. INFLECTRA [Suspect]
     Active Substance: INFLIXIMAB-DYYB
     Dosage: 8MG/KG EVERY 6 WEEKS
     Route: 042
     Dates: start: 20200811

REACTIONS (20)
  - Vein rupture [Unknown]
  - Defaecation urgency [Unknown]
  - Intentional product use issue [Unknown]
  - Condition aggravated [Recovering/Resolving]
  - Sleep disorder [Unknown]
  - Blood pressure increased [Unknown]
  - Therapeutic product effect decreased [Recovered/Resolved]
  - Skin ulcer [Unknown]
  - Heart rate decreased [Unknown]
  - Off label use [Unknown]
  - Blood pressure fluctuation [Not Recovered/Not Resolved]
  - Weight increased [Unknown]
  - Infusion site extravasation [Unknown]
  - Mouth ulceration [Unknown]
  - Off label use [Unknown]
  - Arthralgia [Not Recovered/Not Resolved]
  - Incorrect dose administered [Unknown]
  - Uveitis [Unknown]
  - Heart rate irregular [Unknown]
  - Intentional product misuse [Unknown]

NARRATIVE: CASE EVENT DATE: 20181101
